FAERS Safety Report 8830328 (Version 2)
Quarter: 2012Q4

REPORT INFORMATION
  Report Type: 
  Country: JP (occurrence: JP)
  Receive Date: 20121009
  Receipt Date: 20121115
  Transmission Date: 20130627
  Serious: Yes (Life-Threatening, Hospitalization)
  Sender: FDA-Public Use
  Company Number: JP-MERCK-1209JPN005243

PATIENT
  Age: 56 Year
  Sex: Female

DRUGS (7)
  1. REFLEX [Suspect]
     Indication: DEPRESSION
     Dosage: 15 mg, qd
     Route: 048
     Dates: start: 20111228, end: 20120904
  2. ALPRAZOLAM [Concomitant]
     Indication: DEPRESSION
     Dosage: 1.2 mg, qd
     Route: 048
     Dates: start: 20111228, end: 20120904
  3. FLUNITRAZEPAM [Concomitant]
     Indication: DEPRESSION
     Dosage: 2 mg, qd
     Route: 048
     Dates: start: 20111228
  4. NIFEDIPINE [Concomitant]
     Indication: HYPERTENSION
     Dosage: 40 mg, qd
     Route: 048
     Dates: start: 20100930
  5. CILNIDIPINE [Concomitant]
     Indication: HYPERTENSION
     Dosage: 10 mg, qd
     Route: 048
     Dates: start: 20100521
  6. FAMOTIDINE [Concomitant]
     Indication: GASTRITIS
     Dosage: 20 mg, qd
     Route: 048
     Dates: start: 20111222, end: 20120904
  7. EZETIMIBE [Concomitant]
     Indication: DYSLIPIDAEMIA
     Dosage: 10 mg, qd
     Route: 048
     Dates: start: 20110317, end: 20120704

REACTIONS (1)
  - Inappropriate antidiuretic hormone secretion [Recovering/Resolving]
